FAERS Safety Report 9523804 (Version 2)
Quarter: 2016Q2

REPORT INFORMATION
  Report Type: Spontaneous
  Country: FR (occurrence: FR)
  Receive Date: 20130916
  Receipt Date: 20160527
  Transmission Date: 20160815
  Serious: Yes (Death)
  Sender: FDA-Public Use
  Company Number: FR-009507513-1309FRA004074

PATIENT
  Age: 83 Year
  Sex: Female

DRUGS (8)
  1. METHOTREXATE [Suspect]
     Active Substance: METHOTREXATE
     Dosage: UNK
     Dates: end: 20130801
  2. CORTANCYL [Suspect]
     Active Substance: PREDNISONE
     Dosage: 30 MG, QD
     Route: 048
  3. INEGY [Suspect]
     Active Substance: EZETIMIBE\SIMVASTATIN
     Dosage: 1 DF, QD
     Route: 048
  4. INORIAL (BILASTINE) [Suspect]
     Active Substance: BILASTINE
     Dosage: 20 MG, QD
     Route: 048
     Dates: end: 20130806
  5. PREVISCAN [Suspect]
     Active Substance: FLUINDIONE
     Dosage: 10 MG, QD
  6. MOPRAL (OMEPRAZOLE SODIUM) [Suspect]
     Active Substance: OMEPRAZOLE SODIUM
     Dosage: 20 MG, QD
     Route: 048
     Dates: end: 20130806
  7. PREVISCAN [Suspect]
     Active Substance: FLUINDIONE
     Dosage: 15 MG, QD
     Route: 048
     Dates: end: 20130806
  8. FORTZAAR [Suspect]
     Active Substance: HYDROCHLOROTHIAZIDE\LOSARTAN POTASSIUM
     Dosage: 1 DF, QD
     Route: 048

REACTIONS (1)
  - Interstitial lung disease [Fatal]

NARRATIVE: CASE EVENT DATE: 201307
